FAERS Safety Report 6139581-9 (Version None)
Quarter: 2009Q2

REPORT INFORMATION
  Report Type: 
  Country: None (occurrence: None)
  Receive Date: 20090401
  Receipt Date: 20090319
  Transmission Date: 20091009
  Serious: Yes (Other)
  Sender: FDA-Public Use
  Company Number: US-AMGEN-KDL337119

PATIENT
  Sex: Female
  Weight: 75.5 kg

DRUGS (29)
  1. SENSIPAR [Suspect]
     Indication: HYPERPARATHYROIDISM SECONDARY
  2. MULTI-VITAMINS [Suspect]
     Route: 048
  3. ARANESP [Concomitant]
  4. AMBIEN [Concomitant]
  5. ASPIRIN [Concomitant]
  6. BENADRYL [Concomitant]
  7. BENICAR [Concomitant]
  8. CALCIUM GLUCONATE [Concomitant]
  9. HECTORAL [Concomitant]
  10. HEPARIN SODIUM [Concomitant]
  11. HUMULIN 70/30 [Concomitant]
  12. INFLUENZA VIRUS VACCINE [Concomitant]
  13. NEXIUM [Concomitant]
  14. NITROSTAT [Concomitant]
  15. OXYGEN [Concomitant]
  16. PHENERGAN [Concomitant]
  17. REGLAN [Concomitant]
  18. RENAGEL [Concomitant]
  19. RIFAMPIN [Concomitant]
  20. SIMVASTATIN [Concomitant]
  21. SYNTHROID [Concomitant]
  22. TOPROL-XL [Concomitant]
  23. TYLENOL [Concomitant]
  24. TYLENOL (CAPLET) [Concomitant]
  25. VENOFER [Concomitant]
  26. ZOLOFT [Concomitant]
  27. NEOSPORIN [Concomitant]
  28. SODIUM CHLORIDE [Concomitant]
  29. ACTIVASE [Concomitant]

REACTIONS (2)
  - DYSPNOEA [None]
  - HYPERSENSITIVITY [None]
